FAERS Safety Report 5141988-3 (Version None)
Quarter: 2006Q4

REPORT INFORMATION
  Report Type: 
  Country: None (occurrence: None)
  Receive Date: 20061102
  Receipt Date: 20061024
  Transmission Date: 20070319
  Serious: Yes (Other)
  Sender: FDA-Public Use
  Company Number: ES-JNJFOC-20061002594

PATIENT
  Age: 48 Year
  Sex: Male
  Weight: 75 kg

DRUGS (5)
  1. REMICADE [Suspect]
     Indication: ANKYLOSING SPONDYLITIS
     Dosage: 30 INFUSIONS
     Route: 042
  2. METHOTREXATE [Concomitant]
     Dosage: 10-15MG/WEEK
     Route: 065
  3. MELOXICAM [Concomitant]
     Dosage: 7.5 TO 15MG/DAY
     Route: 065
  4. DEFLAZACORT [Concomitant]
     Dosage: 7.5 TO 15MG/DAY
     Route: 065
  5. OMEPRAZOLE [Concomitant]
     Route: 065

REACTIONS (2)
  - PLEURAL EFFUSION [None]
  - PULMONARY TUBERCULOSIS [None]
